FAERS Safety Report 11857755 (Version 1)
Quarter: 2015Q4

REPORT INFORMATION
  Report Type: Spontaneous
  Country: US (occurrence: None)
  Receive Date: 20151221
  Receipt Date: 20151221
  Transmission Date: 20160305
  Serious: Yes (Disabling)
  Sender: FDA-Public Use
  Company Number: None

PATIENT
  Age: 35 Year
  Sex: Female
  Weight: 104.33 kg

DRUGS (2)
  1. DEXAMETHASONE\NEOMYCIN SULFATE\POLYMYXIN B. [Suspect]
     Active Substance: DEXAMETHASONE\NEOMYCIN SULFATE\POLYMYXIN B
     Indication: EYE DISORDER
     Dosage: 1 DROP  TWICE DAILY  INTO THE EYE
     Dates: start: 20151119, end: 20151126
  2. NATURAL CALM (MAGNESIUM SUPPLEMENT) [Concomitant]

REACTIONS (5)
  - Instillation site irritation [None]
  - Instillation site pruritus [None]
  - Instillation site erythema [None]
  - Vision blurred [None]
  - Instillation site pain [None]

NARRATIVE: CASE EVENT DATE: 20151121
